FAERS Safety Report 5286786-5 (Version None)
Quarter: 2007Q2

REPORT INFORMATION
  Report Type: 
  Country: None (occurrence: None)
  Receive Date: 20070404
  Receipt Date: 20070327
  Transmission Date: 20071010
  Serious: Yes (Other)
  Sender: FDA-Public Use
  Company Number: GB-ROCHE-491041

PATIENT
  Age: 61 Year
  Sex: Male

DRUGS (1)
  1. ANEXATE TAB [Suspect]
     Indication: REVERSAL OF SEDATION
     Route: 065

REACTIONS (1)
  - HYPOGLYCAEMIA [None]
